FAERS Safety Report 4744502-7 (Version None)
Quarter: 2005Q3

REPORT INFORMATION
  Report Type: 
  Country: None (occurrence: None)
  Receive Date: 20050809
  Receipt Date: 20050726
  Transmission Date: 20060218
  Serious: Yes (Hospitalization)
  Sender: FDA-Public Use
  Company Number: THYM-10655

PATIENT
  Age: 60 Year
  Sex: Female
  Weight: 57.7 kg

DRUGS (3)
  1. THYMOGLOBULIN [Suspect]
     Dosage: 25 MG IV
     Route: 042
     Dates: start: 20050409, end: 20050416
  2. PROGRAF [Concomitant]
  3. MYCOPHENOLATE MOFETIL [Concomitant]

REACTIONS (2)
  - CHEST PAIN [None]
  - PERICARDITIS [None]
